FAERS Safety Report 23498273 (Version 3)
Quarter: 2024Q1

REPORT INFORMATION
  Report Type: Spontaneous
  Country: FR (occurrence: FR)
  Receive Date: 20240207
  Receipt Date: 20240322
  Transmission Date: 20240409
  Serious: Yes (Other)
  Sender: FDA-Public Use
  Company Number: FR-CELLTRION INC.-2024FR002738

PATIENT

DRUGS (12)
  1. INFLIXIMAB [Suspect]
     Active Substance: INFLIXIMAB
     Indication: Crohn^s disease
     Dosage: 120 MG, EVERY 2 WEEKS
     Route: 058
     Dates: start: 202306
  2. INFLIXIMAB [Suspect]
     Active Substance: INFLIXIMAB
     Indication: Colitis ulcerative
     Dosage: 120 MG, EVERY 2 WEEKS
     Route: 058
     Dates: start: 202306
  3. INFLIXIMAB [Suspect]
     Active Substance: INFLIXIMAB
     Dosage: 120 MG, EVERY 2 WEEKS
     Route: 058
     Dates: start: 202307
  4. INFLIXIMAB [Suspect]
     Active Substance: INFLIXIMAB
     Dosage: 120MG, EVERY 2 WEEKS
     Route: 058
  5. INFLIXIMAB [Suspect]
     Active Substance: INFLIXIMAB
     Dosage: 120MG, EVERY 2 WEEKS
     Route: 058
  6. OZEMPIC [Concomitant]
     Active Substance: SEMAGLUTIDE
  7. SITAGLIPTIN [Concomitant]
     Active Substance: SITAGLIPTIN
  8. GLIPIZIDE [Concomitant]
     Active Substance: GLIPIZIDE
  9. PANTOPRAZOLE [Concomitant]
     Active Substance: PANTOPRAZOLE
  10. GLICLAZIDE [Concomitant]
     Active Substance: GLICLAZIDE
  11. FLUVASTATIN [Concomitant]
     Active Substance: FLUVASTATIN SODIUM
  12. XARELTO [Concomitant]
     Active Substance: RIVAROXABAN

REACTIONS (3)
  - Loss of consciousness [Unknown]
  - Injection site pain [Recovered/Resolved]
  - Dizziness [Unknown]

NARRATIVE: CASE EVENT DATE: 20230701
